FAERS Safety Report 10695849 (Version 3)
Quarter: 2015Q2

REPORT INFORMATION
  Report Type: Spontaneous
  Country: FR (occurrence: FR)
  Receive Date: 20150107
  Receipt Date: 20150618
  Transmission Date: 20150821
  Serious: Yes (Hospitalization)
  Sender: FDA-Public Use
  Company Number: FR-PFIZER INC-2015002313

PATIENT
  Age: 37 Year
  Sex: Male

DRUGS (4)
  1. ZYVOXID [Suspect]
     Active Substance: LINEZOLID
     Indication: LUNG DISORDER
     Dosage: 600 MG, 2X/DAY
     Route: 048
     Dates: start: 20141217, end: 20141226
  2. SOLUPRED [Concomitant]
     Active Substance: PREDNISOLONE
     Dosage: 2 MG/KG, DAILY
     Dates: start: 20141204
  3. SOLUPRED [Concomitant]
     Active Substance: PREDNISOLONE
     Dosage: 40 MG, DAILY
  4. INEXIUM [Concomitant]
     Active Substance: ESOMEPRAZOLE
     Dosage: 20 MG, DAILY

REACTIONS (1)
  - Hepatitis acute [Recovered/Resolved]

NARRATIVE: CASE EVENT DATE: 20141226
